FAERS Safety Report 8583793-1 (Version None)
Quarter: 2012Q3

REPORT INFORMATION
  Report Type: 
  Country: None (occurrence: None)
  Receive Date: 20120810
  Receipt Date: 20120730
  Transmission Date: 20120928
  Serious: Yes (Death, Life-Threatening, Hospitalization)
  Sender: FDA-Public Use
  Company Number: US-009507513-1208USA000297

PATIENT

DRUGS (7)
  1. VORINOSTAT [Suspect]
     Dosage: 400 MG, QD
     Route: 048
     Dates: start: 20120717, end: 20120722
  2. GEMTUZUMAB OZOGAMICIN [Suspect]
     Indication: ACUTE MYELOID LEUKAEMIA
     Dosage: 3 MG/M2, ONCE
     Route: 042
     Dates: start: 20120703, end: 20120703
  3. GEMTUZUMAB OZOGAMICIN [Suspect]
     Dosage: 3 MG/M2, ONCE
     Route: 042
     Dates: start: 20120720, end: 20120720
  4. AZACITIDINE [Suspect]
     Dosage: 75 MG/M2, QD
     Route: 058
     Dates: start: 20120717, end: 20120723
  5. AZACITIDINE [Suspect]
     Indication: ACUTE MYELOID LEUKAEMIA
     Dosage: 75 MG/M2, QD
     Route: 058
     Dates: start: 20120630, end: 20120705
  6. GEMTUZUMAB OZOGAMICIN [Suspect]
     Dosage: 3 MG/M2, ONCE
     Route: 042
     Dates: start: 20120707, end: 20120707
  7. VORINOSTAT [Suspect]
     Indication: ACUTE MYELOID LEUKAEMIA
     Dosage: 400 MG, QD
     Route: 048
     Dates: start: 20120630, end: 20120708

REACTIONS (6)
  - NAUSEA [None]
  - ACIDOSIS [None]
  - ABDOMINAL PAIN [None]
  - SINUS TACHYCARDIA [None]
  - HYPOXIA [None]
  - SEPSIS [None]
